FAERS Safety Report 8617289-5 (Version None)
Quarter: 2012Q3

REPORT INFORMATION
  Report Type: 
  Country: None (occurrence: None)
  Receive Date: 20120823
  Receipt Date: 20120815
  Transmission Date: 20120928
  Serious: No
  Sender: FDA-Public Use
  Company Number: US-ASTRAZENECA-2012SE57577

PATIENT
  Age: 48 Year
  Sex: Female
  Weight: 80.3 kg

DRUGS (9)
  1. SEROQUEL [Suspect]
     Indication: BIPOLAR DISORDER
     Route: 048
  2. SEROQUEL [Suspect]
     Route: 048
  3. ZANTAC [Concomitant]
  4. XANAX [Concomitant]
  5. PAXIL [Concomitant]
  6. NALDOL [Concomitant]
     Indication: BLOOD PRESSURE
  7. SEROQUEL [Suspect]
     Indication: SCHIZOPHRENIA
     Route: 048
  8. NAPROXEN [Concomitant]
  9. SEROQUEL [Suspect]
     Route: 048

REACTIONS (4)
  - ANGER [None]
  - CHRONIC OBSTRUCTIVE PULMONARY DISEASE [None]
  - DRUG DOSE OMISSION [None]
  - SLUGGISHNESS [None]
